FAERS Safety Report 21705981 (Version 2)
Quarter: 2023Q1

REPORT INFORMATION
  Report Type: Spontaneous
  Country: CA (occurrence: CA)
  Receive Date: 20221209
  Receipt Date: 20230310
  Transmission Date: 20230417
  Serious: Yes (Hospitalization, Other)
  Sender: FDA-Public Use
  Company Number: CA-ADVANZ PHARMA-202211008334

PATIENT
  Age: 52 Year
  Sex: Female

DRUGS (2)
  1. OCALIVA [Suspect]
     Active Substance: OBETICHOLIC ACID
     Indication: Primary biliary cholangitis
     Dosage: 5 MG (TWICE A WEEK (MON, THURS)) (OCALIVA)
     Route: 048
     Dates: start: 20220609
  2. URSODIOL [Concomitant]
     Active Substance: URSODIOL
     Dosage: 1250 MG
     Dates: start: 2017

REACTIONS (4)
  - Pneumonia [Recovered/Resolved]
  - Nasopharyngitis [Recovered/Resolved]
  - Alopecia [Unknown]
  - Off label use [Unknown]
